FAERS Safety Report 16658944 (Version 1)
Quarter: 2019Q3

REPORT INFORMATION
  Report Type: Spontaneous
  Country: US (occurrence: US)
  Receive Date: 20190801
  Receipt Date: 20190801
  Transmission Date: 20191004
  Serious: Yes (Other)
  Sender: FDA-Public Use
  Company Number: US-AMGEN-USASP2019121981

PATIENT
  Age: 60 Year
  Sex: Female

DRUGS (2)
  1. NEUPOGEN [Suspect]
     Active Substance: FILGRASTIM
     Indication: NEUTROPENIA
     Dosage: 100 MICROGRAM
     Route: 065
     Dates: start: 2009
  2. NEUPOGEN [Suspect]
     Active Substance: FILGRASTIM
     Dosage: 100 MICROGRAM
     Route: 065

REACTIONS (1)
  - Neutropenia [Unknown]
